FAERS Safety Report 7386149-2 (Version None)
Quarter: 2011Q1

REPORT INFORMATION
  Report Type: 
  Country: None (occurrence: None)
  Receive Date: 20110331
  Receipt Date: 20110317
  Transmission Date: 20110831
  Serious: Yes (Hospitalization)
  Sender: FDA-Public Use
  Company Number: DE-JNJFOC-20110311928

PATIENT
  Age: 30 Year
  Sex: Female
  Weight: 55 kg

DRUGS (8)
  1. DULOXETINE [Concomitant]
  2. TAPENTADOL [Suspect]
     Indication: POST-TRAUMATIC PAIN
     Route: 048
  3. DRONABINOL [Concomitant]
     Indication: POST-TRAUMATIC PAIN
  4. TAPENTADOL [Suspect]
     Route: 048
  5. HYDROMORPHONE HCL [Concomitant]
     Indication: POST-TRAUMATIC PAIN
  6. ANTIEMETICS AND ANTINAUSEANTS [Concomitant]
  7. FENTANYL [Concomitant]
     Indication: POST-TRAUMATIC PAIN
  8. PARACETAMOL [Concomitant]

REACTIONS (2)
  - MUSCLE SPASTICITY [None]
  - DRUG INEFFECTIVE [None]
